FAERS Safety Report 19302098 (Version 2)
Quarter: 2023Q2

REPORT INFORMATION
  Report Type: Report from Study
  Country: TR (occurrence: TR)
  Receive Date: 20210525
  Receipt Date: 20230502
  Transmission Date: 20230721
  Serious: Yes (Other)
  Sender: FDA-Public Use
  Company Number: TR-SUN PHARMACEUTICAL INDUSTRIES LTD-2021R1-297761

PATIENT

DRUGS (2)
  1. LAMOTRIGINE [Suspect]
     Active Substance: LAMOTRIGINE
     Indication: Nervous system disorder
     Dosage: 25 MILLIGRAM, QD
     Route: 064
  2. VALPROIC ACID [Suspect]
     Active Substance: VALPROIC ACID
     Indication: Nervous system disorder
     Dosage: 500 MILLIGRAM, BID
     Route: 064

REACTIONS (2)
  - Cataract congenital [Unknown]
  - Foetal exposure during pregnancy [Unknown]
